FAERS Safety Report 5078860-3 (Version None)
Quarter: 2006Q3

REPORT INFORMATION
  Report Type: 
  Country: None (occurrence: None)
  Receive Date: 20060809
  Receipt Date: 20060724
  Transmission Date: 20061208
  Serious: Yes (Hospitalization)
  Sender: FDA-Public Use
  Company Number: 227657

PATIENT
  Age: 64 Year
  Sex: Female

DRUGS (5)
  1. AVASTIN [Suspect]
     Indication: COLORECTAL CANCER
     Dosage: 5 MG/KG, Q2W, INTRAVENOUS
     Route: 042
     Dates: start: 20060203
  2. OXALIPLATIN              (OXALIPLATIN) [Suspect]
     Indication: COLORECTAL CANCER
     Dosage: 85MG/M2, Q2W, INTRAVENOUS
     Route: 042
     Dates: start: 20060203
  3. CAPECITABINE                    (CAPECITABINE) [Suspect]
     Indication: COLORECTAL CANCER
     Dosage: 850 MG/M2, BID, ORAL
     Route: 048
     Dates: start: 20060203, end: 20060519
  4. DILAUDID [Suspect]
  5. K-DUR              (POTASSAIUM CHLORIDE) [Concomitant]

REACTIONS (16)
  - ABASIA [None]
  - DIARRHOEA [None]
  - FACIAL WASTING [None]
  - FATIGUE [None]
  - HAEMATOCRIT DECREASED [None]
  - HAEMOGLOBIN DECREASED [None]
  - HYPOAESTHESIA [None]
  - HYPOALBUMINAEMIA [None]
  - MEAN CELL HAEMOGLOBIN INCREASED [None]
  - MEAN CELL VOLUME INCREASED [None]
  - MEAN PLATELET VOLUME DECREASED [None]
  - OEDEMA PERIPHERAL [None]
  - ORAL INTAKE REDUCED [None]
  - RED BLOOD CELL COUNT DECREASED [None]
  - RED CELL DISTRIBUTION WIDTH INCREASED [None]
  - WEIGHT DECREASED [None]
